FAERS Safety Report 9820736 (Version 1)
Quarter: 2014Q1

REPORT INFORMATION
  Report Type: Spontaneous
  Country: US (occurrence: None)
  Receive Date: 20140114
  Receipt Date: 20140114
  Transmission Date: 20141002
  Serious: Yes (Hospitalization)
  Sender: FDA-Public Use
  Company Number: None

PATIENT
  Age: 25 Year
  Sex: Male
  Weight: 72.12 kg

DRUGS (1)
  1. CLOZAPINE, 200 MG [Suspect]
     Indication: SCHIZOPHRENIA
     Dosage: TAKEN  BY MOUTH
     Route: 048
     Dates: start: 20140113

REACTIONS (13)
  - Hyperhidrosis [None]
  - Hyperventilation [None]
  - Multiple allergies [None]
  - Fatigue [None]
  - Sluggishness [None]
  - Protrusion tongue [None]
  - Hallucination, visual [None]
  - Kyphosis [None]
  - Tremor [None]
  - Tongue movement disturbance [None]
  - Abdominal pain upper [None]
  - Chills [None]
  - Abnormal behaviour [None]
